FAERS Safety Report 5682298-5 (Version None)
Quarter: 2008Q1

REPORT INFORMATION
  Report Type: 
  Country: None (occurrence: None)
  Receive Date: 20080327
  Receipt Date: 20080317
  Transmission Date: 20080703
  Serious: Yes (Other)
  Sender: FDA-Public Use
  Company Number: PHEH2006US07280

PATIENT
  Age: 76 Year
  Sex: Female
  Weight: 104.31 kg

DRUGS (4)
  1. AREDIA [Suspect]
  2. ZOMETA [Suspect]
  3. THYROID HORMONES [Concomitant]
  4. COUMADIN [Concomitant]

REACTIONS (12)
  - ANXIETY [None]
  - ARTHROPATHY [None]
  - BACK PAIN [None]
  - BONE DISORDER [None]
  - DECREASED INTEREST [None]
  - GENERAL PHYSICAL HEALTH DETERIORATION [None]
  - ORAL INFECTION [None]
  - OSTEONECROSIS [None]
  - PAIN [None]
  - SCIATICA [None]
  - SPINAL COLUMN STENOSIS [None]
  - SPINAL OSTEOARTHRITIS [None]
